FAERS Safety Report 7247264-7 (Version None)
Quarter: 2011Q1

REPORT INFORMATION
  Report Type: 
  Country: None (occurrence: None)
  Receive Date: 20110127
  Receipt Date: 20090923
  Transmission Date: 20110831
  Serious: Yes (Death)
  Sender: FDA-Public Use
  Company Number: A0808960A

PATIENT
  Age: 58 Year
  Sex: Female

DRUGS (2)
  1. PROMACTA [Suspect]
     Dosage: 50MG PER DAY
     Route: 048
     Dates: start: 20090409, end: 20090418
  2. CORTICOSTEROIDS [Concomitant]
     Dates: start: 20081016

REACTIONS (2)
  - PANCREATIC CARCINOMA [None]
  - DRUG INEFFECTIVE [None]
